FAERS Safety Report 4276459-X (Version None)
Quarter: 2004Q1

REPORT INFORMATION
  Report Type: 
  Country: None (occurrence: None)
  Receive Date: 20040121
  Receipt Date: 20040121
  Transmission Date: 20041129
  Serious: Yes (Hospitalization)
  Sender: FDA-Public Use
  Company Number: None

PATIENT
  Age: 58 Year
  Sex: Female
  Weight: 58.1965 kg

DRUGS (1)
  1. ONTAK [Suspect]
     Indication: GRAFT VERSUS HOST DISEASE
     Dosage: 600 INTRAVENOUS
     Route: 042
     Dates: start: 20040108, end: 20040115

REACTIONS (7)
  - ABDOMINAL PAIN [None]
  - DYSPNOEA [None]
  - EPISTAXIS [None]
  - NAUSEA [None]
  - PYREXIA [None]
  - SINUS PAIN [None]
  - VOMITING [None]
